FAERS Safety Report 5408370-2 (Version None)
Quarter: 2007Q3

REPORT INFORMATION
  Report Type: 
  Country: None (occurrence: None)
  Receive Date: 20070808
  Receipt Date: 20070614
  Transmission Date: 20080115
  Serious: Yes (Other)
  Sender: FDA-Public Use
  Company Number: US-PURDUE-USA_2007_0028012

PATIENT
  Age: 56 Year
  Sex: Female
  Weight: 86 kg

DRUGS (6)
  1. OXYCONTIN [Suspect]
     Indication: NECK PAIN
     Dosage: UNK, SEE TEXT
     Dates: start: 19990101, end: 20050201
  2. MESALAZINE [Concomitant]
     Dosage: 250 MG, SEE TEXT
  3. COLESTID [Concomitant]
     Dosage: 1 GRAM, BID
  4. NORVASC [Concomitant]
     Dosage: 10 MG, BID
  5. WELLBUTRIN [Concomitant]
     Dosage: UNK, DAILY
  6. PROZAC [Concomitant]
     Dosage: UNK, DAILY

REACTIONS (6)
  - DEPRESSION [None]
  - DRUG DEPENDENCE [None]
  - FEELING ABNORMAL [None]
  - OVERDOSE [None]
  - PERSONALITY CHANGE [None]
  - SUICIDE ATTEMPT [None]
